FAERS Safety Report 10345189 (Version 1)
Quarter: 2014Q3

REPORT INFORMATION
  Report Type: Report from Study
  Country: GR (occurrence: GR)
  Receive Date: 20140728
  Receipt Date: 20140728
  Transmission Date: 20150326
  Serious: Yes (Other)
  Sender: FDA-Public Use
  Company Number: GR-SA-2014SA097180

PATIENT

DRUGS (1)
  1. CABAZITAXEL [Suspect]
     Active Substance: CABAZITAXEL
     Indication: NON-SMALL CELL LUNG CANCER METASTATIC
     Dosage: RECEIVED AT UNKNOWN FREQUENCY EVERY 21 DAYS.
     Route: 042

REACTIONS (1)
  - Cystitis haemorrhagic [Recovered/Resolved]
